FAERS Safety Report 11336035 (Version 1)
Quarter: 2015Q3

REPORT INFORMATION
  Report Type: Spontaneous
  Country: AU (occurrence: AU)
  Receive Date: 20150804
  Receipt Date: 20150804
  Transmission Date: 20151125
  Serious: Yes (Hospitalization, Other)
  Sender: FDA-Public Use
  Company Number: AU-ACTELION-A-CH2015-121757

PATIENT
  Age: 15 Year
  Sex: Male

DRUGS (1)
  1. TRACLEER [Suspect]
     Active Substance: BOSENTAN
     Indication: PULMONARY ARTERIAL HYPERTENSION
     Dosage: UNK
     Route: 048
     Dates: start: 200708

REACTIONS (3)
  - Dyspnoea at rest [Unknown]
  - Stent placement [Unknown]
  - Chest pain [Unknown]

NARRATIVE: CASE EVENT DATE: 2010
